FAERS Safety Report 4446949-5 (Version None)
Quarter: 2004Q3

REPORT INFORMATION
  Report Type: 
  Country: None (occurrence: None)
  Receive Date: 20040813
  Receipt Date: 20040628
  Transmission Date: 20050211
  Serious: No
  Sender: FDA-Public Use
  Company Number: S04-USA-03732-01

PATIENT
  Age: 84 Year
  Sex: Female

DRUGS (10)
  1. NAMENDA [Suspect]
     Indication: DEMENTIA ALZHEIMER'S TYPE
     Dosage: 20 MG QD PO
     Route: 048
     Dates: start: 20040131
  2. NAMENDA [Suspect]
     Indication: DEMENTIA ALZHEIMER'S TYPE
     Dosage: 5 MG QD PO
     Route: 048
     Dates: start: 20040110, end: 20040116
  3. NAMENDA [Suspect]
     Indication: DEMENTIA ALZHEIMER'S TYPE
     Dosage: 10 MG QD PO
     Route: 048
     Dates: start: 20040117, end: 20040123
  4. NAMENDA [Suspect]
     Indication: DEMENTIA ALZHEIMER'S TYPE
     Dosage: 15 MG QD PO
     Route: 048
     Dates: start: 20040124, end: 20040130
  5. ARICEPT [Concomitant]
  6. THYROID MEDICATION (NOS) [Concomitant]
  7. TOPROL-XL [Concomitant]
  8. PREVACID [Concomitant]
  9. COLACE (DOCUSATE SODIUM) [Concomitant]
  10. CELEBREX [Concomitant]

REACTIONS (1)
  - AGITATION [None]
